FAERS Safety Report 18312476 (Version 1)
Quarter: 2020Q3

REPORT INFORMATION
  Report Type: Spontaneous
  Country: IT (occurrence: IT)
  Receive Date: 20200925
  Receipt Date: 20200925
  Transmission Date: 20201103
  Serious: Yes (Other)
  Sender: FDA-Public Use
  Company Number: IT-CLOVIS ONCOLOGY-CLO-2020-001780

PATIENT

DRUGS (1)
  1. RUBRACA [Suspect]
     Active Substance: RUCAPARIB CAMSYLATE
     Indication: OVARIAN CANCER
     Dosage: 1200 MG, UNK
     Route: 048
     Dates: start: 20200302

REACTIONS (2)
  - Skin toxicity [Unknown]
  - Blister [Unknown]

NARRATIVE: CASE EVENT DATE: 20200914
